FAERS Safety Report 18796616 (Version 3)
Quarter: 2021Q1

REPORT INFORMATION
  Report Type: Spontaneous
  Country: TR (occurrence: TR)
  Receive Date: 20210128
  Receipt Date: 20210304
  Transmission Date: 20210419
  Serious: Yes (Other)
  Sender: FDA-Public Use
  Company Number: NVSC2021TR014034

PATIENT
  Age: 35 Year
  Sex: Male

DRUGS (1)
  1. TRILEPTAL [Suspect]
     Active Substance: OXCARBAZEPINE
     Indication: EPILEPSY
     Dosage: 1 DF, TID
     Route: 048

REACTIONS (7)
  - Mental impairment [Unknown]
  - Product supply issue [Unknown]
  - Somnolence [Unknown]
  - Insomnia [Unknown]
  - Hip fracture [Unknown]
  - Seizure [Unknown]
  - Syncope [Unknown]
